FAERS Safety Report 25506314 (Version 1)
Quarter: 2025Q3

REPORT INFORMATION
  Report Type: Spontaneous
  Country: US (occurrence: US)
  Receive Date: 20250702
  Receipt Date: 20250702
  Transmission Date: 20251021
  Serious: No
  Sender: SANOFI AVENTIS
  Company Number: US-SA-2025SA185416

PATIENT
  Age: 59 Year
  Sex: Female

DRUGS (1)
  1. DUPIXENT [Suspect]
     Active Substance: DUPILUMAB
     Indication: Asthma
     Dosage: 300 MG, QOW
     Route: 058
     Dates: start: 20230615

REACTIONS (4)
  - Connective tissue disorder [Not Recovered/Not Resolved]
  - Asthma [Recovering/Resolving]
  - Rebound effect [Recovering/Resolving]
  - Gait disturbance [Recovering/Resolving]
